FAERS Safety Report 25727580 (Version 2)
Quarter: 2025Q3

REPORT INFORMATION
  Report Type: Spontaneous
  Country: US (occurrence: TW)
  Receive Date: 20250826
  Receipt Date: 20250901
  Transmission Date: 20251021
  Serious: Yes (Death, Life-Threatening, Hospitalization, Other)
  Sender: SANDOZ
  Company Number: US-SANDOZ-SDZ2025TW060795

PATIENT
  Age: 73 Year
  Sex: Male
  Weight: 62 kg

DRUGS (47)
  1. CARBOPLATIN [Suspect]
     Active Substance: CARBOPLATIN
     Indication: Non-small cell lung cancer stage IV
     Dosage: 300.16 AUC-3.75, Q3W
     Route: 042
     Dates: start: 20250723, end: 20250723
  2. CARBOPLATIN [Suspect]
     Active Substance: CARBOPLATIN
     Dosage: 416.4 AUC-5, Q3W
     Route: 042
     Dates: start: 20250723, end: 20250723
  3. PEMETREXED [Suspect]
     Active Substance: PEMETREXED
     Dosage: 500 MG/M2, Q3W
     Route: 042
     Dates: start: 20250723, end: 20250723
  4. PEMETREXED [Suspect]
     Active Substance: PEMETREXED
     Indication: Non-small cell lung cancer stage IV
     Dosage: 810 MG/M2, Q3W
     Route: 042
     Dates: start: 20250430, end: 20250430
  5. PEMBROLIZUMAB [Suspect]
     Active Substance: PEMBROLIZUMAB
     Indication: Non-small cell lung cancer stage IV
     Dosage: 200 MG, Q3W
     Route: 042
     Dates: start: 20250430, end: 20250430
  6. PEMBROLIZUMAB [Suspect]
     Active Substance: PEMBROLIZUMAB
     Dosage: 200 MG, Q3W
     Route: 042
     Dates: start: 20250723, end: 20250723
  7. ACETAMINOPHEN [Concomitant]
     Active Substance: ACETAMINOPHEN
     Indication: Product used for unknown indication
     Route: 065
     Dates: start: 20230801
  8. AMBROXOL [Concomitant]
     Active Substance: AMBROXOL
     Indication: Product used for unknown indication
     Route: 065
     Dates: start: 20250627
  9. AMIODARONE [Concomitant]
     Active Substance: AMIODARONE
     Indication: Product used for unknown indication
     Route: 065
     Dates: start: 20250723
  10. ASPIRIN [Concomitant]
     Active Substance: ASPIRIN
     Indication: Product used for unknown indication
     Route: 065
     Dates: start: 20090301
  11. ATORVASTATIN [Concomitant]
     Active Substance: ATORVASTATIN
     Indication: Product used for unknown indication
     Route: 065
     Dates: start: 20110614
  12. AZELASTINE HYDROCHLORIDE\FLUTICASONE PROPIONATE [Concomitant]
     Active Substance: AZELASTINE HYDROCHLORIDE\FLUTICASONE PROPIONATE
     Indication: Product used for unknown indication
     Route: 065
     Dates: start: 20250722
  13. Bacitracin zinc;Neomycin sulfate;Polymyxin b [Concomitant]
     Indication: Product used for unknown indication
     Route: 065
     Dates: start: 20250711
  14. BENZONATATE [Concomitant]
     Active Substance: BENZONATATE
     Indication: Product used for unknown indication
     Route: 065
     Dates: start: 20250627
  15. BETAMETHASONE [Concomitant]
     Active Substance: BETAMETHASONE
     Indication: Product used for unknown indication
     Route: 065
     Dates: start: 20250624
  16. BISOPROLOL [Concomitant]
     Active Substance: BISOPROLOL
     Indication: Product used for unknown indication
     Route: 065
     Dates: start: 20110724
  17. CEFEPIME [Concomitant]
     Active Substance: CEFEPIME HYDROCHLORIDE
     Indication: Product used for unknown indication
     Route: 065
     Dates: start: 20250709, end: 20250713
  18. CEFTRIAXONE [Concomitant]
     Active Substance: CEFTRIAXONE
     Indication: Product used for unknown indication
     Route: 065
     Dates: start: 20250709, end: 20250709
  19. CHLORHEXIDINE [Concomitant]
     Active Substance: CHLORHEXIDINE
     Indication: Product used for unknown indication
     Route: 065
     Dates: start: 20250704
  20. CILOSTAZOL [Concomitant]
     Active Substance: CILOSTAZOL
     Indication: Product used for unknown indication
     Route: 065
     Dates: start: 20181214
  21. CLOBETASOL [Concomitant]
     Active Substance: CLOBETASOL
     Indication: Product used for unknown indication
     Route: 065
     Dates: start: 20250709
  22. DEXTROMETHORPHAN [Concomitant]
     Active Substance: DEXTROMETHORPHAN
     Indication: Product used for unknown indication
     Route: 065
     Dates: start: 20250624
  23. DILTIAZEM [Concomitant]
     Active Substance: DILTIAZEM
     Indication: Product used for unknown indication
     Route: 065
     Dates: start: 20090921
  24. DIMETHICONE [Concomitant]
     Active Substance: DIMETHICONE
     Indication: Product used for unknown indication
     Route: 065
     Dates: start: 20180824
  25. DOXEPIN [Concomitant]
     Active Substance: DOXEPIN
     Indication: Product used for unknown indication
     Route: 065
     Dates: start: 20250709
  26. DOXEPIN HYDROCHLORIDE [Concomitant]
     Active Substance: DOXEPIN HYDROCHLORIDE
     Indication: Product used for unknown indication
     Route: 065
     Dates: start: 20250411
  27. FILGRASTIM [Concomitant]
     Active Substance: FILGRASTIM
     Indication: Product used for unknown indication
     Route: 065
     Dates: start: 20250702, end: 20250709
  28. FOLIC ACID [Concomitant]
     Active Substance: FOLIC ACID
     Indication: Product used for unknown indication
     Route: 065
     Dates: start: 20250417
  29. GENTAMICIN [Concomitant]
     Active Substance: GENTAMICIN
     Indication: Product used for unknown indication
     Route: 065
     Dates: start: 20250704, end: 20250710
  30. GLYCYRRHIZA [Concomitant]
     Active Substance: LICORICE
     Indication: Product used for unknown indication
     Route: 065
     Dates: start: 20250624
  31. HYDROXYZINE [Concomitant]
     Active Substance: HYDROXYZINE HYDROCHLORIDE
     Indication: Product used for unknown indication
     Route: 065
     Dates: start: 20250709
  32. LACTULOSE [Concomitant]
     Active Substance: LACTULOSE
     Indication: Product used for unknown indication
     Route: 065
     Dates: start: 20250712
  33. LEMBOREXANT [Concomitant]
     Active Substance: LEMBOREXANT
     Indication: Product used for unknown indication
     Route: 065
     Dates: start: 20250721
  34. LEVOCETIRIZINE [Concomitant]
     Active Substance: LEVOCETIRIZINE
     Indication: Product used for unknown indication
     Route: 065
     Dates: start: 20250709
  35. MAGNESIUM SULFATE [Concomitant]
     Active Substance: MAGNESIUM SULFATE
     Indication: Product used for unknown indication
     Route: 065
     Dates: start: 20250712, end: 20250712
  36. METHYLCOBALAMIN [Concomitant]
     Active Substance: METHYLCOBALAMIN
     Indication: Product used for unknown indication
     Route: 065
     Dates: start: 20250417
  37. MICONAZOLE [Concomitant]
     Active Substance: MICONAZOLE
     Indication: Product used for unknown indication
     Route: 065
     Dates: start: 20250709
  38. NICORANDIL [Concomitant]
     Active Substance: NICORANDIL
     Indication: Product used for unknown indication
     Route: 065
     Dates: start: 20231018
  39. PHENYLEPHRINE\TROPICAMIDE [Concomitant]
     Active Substance: PHENYLEPHRINE\TROPICAMIDE
     Indication: Product used for unknown indication
     Route: 065
     Dates: start: 20250711
  40. POTASSIUM GLUCONATE [Concomitant]
     Active Substance: POTASSIUM GLUCONATE
     Indication: Product used for unknown indication
     Route: 065
     Dates: start: 20250712
  41. QUETIAPINE [Concomitant]
     Active Substance: QUETIAPINE
     Indication: Product used for unknown indication
     Route: 065
     Dates: start: 20250712
  42. HUMAN RED BLOOD CELL [Concomitant]
     Active Substance: HUMAN RED BLOOD CELL
     Indication: Product used for unknown indication
     Route: 065
     Dates: start: 20250709, end: 20250709
  43. SENNOSIDES A AND B [Concomitant]
     Active Substance: SENNOSIDES A AND B
     Indication: Product used for unknown indication
     Route: 065
     Dates: start: 20250711
  44. TENOFOVIR ALAFENAMIDE FUMARATE [Concomitant]
     Active Substance: TENOFOVIR ALAFENAMIDE FUMARATE
     Indication: Product used for unknown indication
     Route: 065
     Dates: start: 20250415
  45. ACETAMINOPHEN\TRAMADOL [Concomitant]
     Active Substance: ACETAMINOPHEN\TRAMADOL
     Indication: Product used for unknown indication
     Route: 065
     Dates: start: 20250711
  46. VALPROATE [Concomitant]
     Active Substance: VALPROIC ACID
     Indication: Product used for unknown indication
     Route: 065
     Dates: start: 20250715
  47. VALSARTAN [Concomitant]
     Active Substance: VALSARTAN
     Indication: Product used for unknown indication
     Route: 065
     Dates: start: 20180824

REACTIONS (21)
  - Cardiac arrest [Fatal]
  - Pneumonia [Fatal]
  - Pneumonia [Not Recovered/Not Resolved]
  - Pulmonary oedema [Unknown]
  - Febrile neutropenia [Unknown]
  - Septic shock [Unknown]
  - Platelet count decreased [Unknown]
  - Neutrophil count decreased [Unknown]
  - Haemorrhage intracranial [Unknown]
  - White blood cell count decreased [Unknown]
  - Thrombocytopenia [Unknown]
  - Pancytopenia [Unknown]
  - Atrial flutter [Unknown]
  - Urinary tract infection fungal [Unknown]
  - Corynebacterium bacteraemia [Unknown]
  - Respiratory failure [Unknown]
  - Feeling of despair [Unknown]
  - Sputum retention [Unknown]
  - Dyspnoea [Not Recovered/Not Resolved]
  - Brevibacterium infection [Unknown]
  - Decreased appetite [Unknown]

NARRATIVE: CASE EVENT DATE: 20250709
